FAERS Safety Report 8559154-8 (Version None)
Quarter: 2012Q3

REPORT INFORMATION
  Report Type: 
  Country: None (occurrence: None)
  Receive Date: 20120802
  Receipt Date: 20120719
  Transmission Date: 20120928
  Serious: No
  Sender: FDA-Public Use
  Company Number: US-009507513-1207USA007737

PATIENT

DRUGS (2)
  1. COZAAR [Suspect]
     Indication: HYPERTENSION
     Dosage: 100 MG, QD
     Route: 048
     Dates: start: 19970101
  2. SYNTHROID [Concomitant]

REACTIONS (3)
  - PARAESTHESIA ORAL [None]
  - BLOOD PRESSURE INCREASED [None]
  - PRODUCT ODOUR ABNORMAL [None]
